FAERS Safety Report 8996355 (Version 6)
Quarter: 2013Q1

REPORT INFORMATION
  Report Type: Spontaneous
  Country: US (occurrence: US)
  Receive Date: 20130104
  Receipt Date: 20130318
  Transmission Date: 20140127
  Serious: Yes (Hospitalization)
  Sender: FDA-Public Use
  Company Number: US-BIOGENIDEC-2012BI065114

PATIENT
  Age: 46 Year
  Sex: Female

DRUGS (7)
  1. TYSABRI [Suspect]
     Indication: MULTIPLE SCLEROSIS
     Route: 042
     Dates: start: 20120711
  2. FIORICET WITH CODEINE [Concomitant]
     Indication: MIGRAINE
  3. FENTANYL [Concomitant]
     Indication: BACK PAIN
     Route: 061
  4. CODEINE [Concomitant]
     Indication: MIGRAINE
     Route: 048
  5. FLEXERIL [Concomitant]
     Indication: MUSCLE SPASMS
     Route: 048
     Dates: start: 2000
  6. DILAUDID [Concomitant]
     Indication: PAIN
     Route: 048
     Dates: start: 2000
  7. VALIUM [Concomitant]
     Indication: MUSCLE SPASMS
     Route: 048
     Dates: start: 2000

REACTIONS (18)
  - Musculoskeletal stiffness [Recovered/Resolved]
  - Multiple sclerosis relapse [Recovered/Resolved]
  - Abdominal pain upper [Recovered/Resolved]
  - Aphagia [Recovered/Resolved]
  - Nausea [Recovered/Resolved]
  - Hiatus hernia [Not Recovered/Not Resolved]
  - Muscle spasms [Not Recovered/Not Resolved]
  - Gastritis [Recovered/Resolved]
  - Abasia [Recovered/Resolved]
  - Mental impairment [Recovered/Resolved]
  - General symptom [Recovered/Resolved]
  - Memory impairment [Not Recovered/Not Resolved]
  - Fatigue [Not Recovered/Not Resolved]
  - Local swelling [Recovered/Resolved with Sequelae]
  - Vomiting [Not Recovered/Not Resolved]
  - Feeling abnormal [Recovered/Resolved]
  - Asthenia [Recovered/Resolved]
  - Weight decreased [Recovered/Resolved]
